FAERS Safety Report 19029205 (Version 1)
Quarter: 2021Q1

REPORT INFORMATION
  Report Type: Spontaneous
  Country: CN (occurrence: CN)
  Receive Date: 20210318
  Receipt Date: 20210318
  Transmission Date: 20210420
  Serious: Yes (Hospitalization, Other)
  Sender: FDA-Public Use
  Company Number: CN-PURDUE-USA-2021-0234797

PATIENT
  Age: 65 Year
  Sex: Male
  Weight: 56 kg

DRUGS (3)
  1. OXYCONTIN [Suspect]
     Active Substance: OXYCODONE HYDROCHLORIDE
     Dosage: 10 MG, Q12H (1 TABLET EVERY 12 HOURS)
     Route: 048
     Dates: start: 20200206, end: 20200207
  2. OXYCODONE/ ACETAMINOPHEN TABLETS [Suspect]
     Active Substance: ACETAMINOPHEN\OXYCODONE HYDROCHLORIDE
     Indication: CANCER PAIN
     Dosage: 1 TABLET, Q8H
     Route: 048
     Dates: start: 20200203, end: 20200206
  3. OXYCONTIN [Suspect]
     Active Substance: OXYCODONE HYDROCHLORIDE
     Indication: CANCER PAIN
     Dosage: 20 MG, Q12H (2 TABLETS EVERY 12 HOURS)
     Route: 048
     Dates: start: 20200208

REACTIONS (1)
  - Liver injury [Not Recovered/Not Resolved]

NARRATIVE: CASE EVENT DATE: 20200208
